FAERS Safety Report 7907128-X (Version None)
Quarter: 2011Q4

REPORT INFORMATION
  Report Type: 
  Country: None (occurrence: None)
  Receive Date: 20111110
  Receipt Date: 20110908
  Transmission Date: 20120403
  Serious: No
  Sender: FDA-Public Use
  Company Number: US-ASTRAZENECA-2011SE53898

PATIENT
  Age: 61 Year
  Sex: Female
  Weight: 72.6 kg

DRUGS (13)
  1. HYDROCODONE BITARTRATE [Concomitant]
  2. HUMALOG [Concomitant]
  3. TRICOR [Concomitant]
  4. METFORMIN HCL [Concomitant]
  5. FLUTICASONE PROPIONATE [Concomitant]
  6. OMEPRAZOLE [Suspect]
     Indication: ABDOMINAL PAIN UPPER
     Route: 048
     Dates: start: 20110818
  7. ACIPHEX [Concomitant]
     Indication: ABDOMINAL PAIN UPPER
  8. ACTOS [Suspect]
     Indication: TYPE 2 DIABETES MELLITUS
     Route: 048
     Dates: start: 20100901
  9. FEXOFENADINE [Concomitant]
  10. CYMBALTA [Concomitant]
  11. NIFEDIPINE [Concomitant]
  12. LISINOPRIL [Suspect]
     Route: 048
  13. CRESTOR [Suspect]
     Route: 048

REACTIONS (9)
  - TREMOR [None]
  - OFF LABEL USE [None]
  - FLATULENCE [None]
  - ERUCTATION [None]
  - APHAGIA [None]
  - ABDOMINAL PAIN UPPER [None]
  - ABDOMINAL DISCOMFORT [None]
  - DRUG INEFFECTIVE FOR UNAPPROVED INDICATION [None]
  - BLOOD GLUCOSE DECREASED [None]
